FAERS Safety Report 4976013-8 (Version None)
Quarter: 2006Q2

REPORT INFORMATION
  Report Type: 
  Country: None (occurrence: None)
  Receive Date: 20060412
  Receipt Date: 20060404
  Transmission Date: 20061013
  Serious: Yes (Hospitalization)
  Sender: FDA-Public Use
  Company Number: 200610475BVD

PATIENT
  Age: 57 Year
  Sex: Male
  Weight: 57 kg

DRUGS (3)
  1. SORAFENIB [Suspect]
     Indication: HEPATIC NEOPLASM MALIGNANT
     Dosage: 400 MG, TOTAL DAILY, ORAL
     Route: 048
     Dates: start: 20051222
  2. BELOC ZOK [Concomitant]
  3. FINLEPSIN [Concomitant]

REACTIONS (1)
  - HYPERKERATOSIS [None]
